FAERS Safety Report 11327532 (Version 4)
Quarter: 2015Q3

REPORT INFORMATION
  Report Type: Spontaneous
  Country: US (occurrence: US)
  Receive Date: 20150731
  Receipt Date: 20150824
  Transmission Date: 20151125
  Serious: Yes (Disabling, Other)
  Sender: FDA-Public Use
  Company Number: US-BAYER-2015-386411

PATIENT
  Age: 53 Year
  Sex: Male
  Weight: 112 kg

DRUGS (3)
  1. CIPRO [Suspect]
     Active Substance: CIPROFLOXACIN HYDROCHLORIDE
     Indication: INFECTION
     Dosage: UNK
     Dates: start: 2014, end: 2014
  2. CENTRUM [Suspect]
     Active Substance: VITAMINS
     Dosage: UNK
     Dates: start: 201507
  3. LEVAQUIN [Suspect]
     Active Substance: LEVOFLOXACIN
     Dosage: UNK
     Dates: start: 2014

REACTIONS (17)
  - Gangrene [None]
  - Splinter [None]
  - Feeling abnormal [None]
  - Feeling hot [None]
  - Tremor [None]
  - Weight decreased [None]
  - Neuropathy peripheral [None]
  - Paraesthesia [Recovering/Resolving]
  - Drug hypersensitivity [Recovering/Resolving]
  - Drug withdrawal syndrome [None]
  - Peripheral swelling [Recovering/Resolving]
  - Unevaluable event [None]
  - Insomnia [None]
  - Hyperhidrosis [None]
  - Pain [Recovered/Resolved]
  - Hypoaesthesia [Not Recovered/Not Resolved]
  - Gait disturbance [None]

NARRATIVE: CASE EVENT DATE: 2014
